FAERS Safety Report 24044457 (Version 1)
Quarter: 2024Q3

REPORT INFORMATION
  Report Type: Spontaneous
  Country: US (occurrence: US)
  Receive Date: 20240703
  Receipt Date: 20240703
  Transmission Date: 20241016
  Serious: Yes (Death, Hospitalization)
  Sender: NOVITIUM PHARMA
  Company Number: US-NOVITIUMPHARMA-2024USNVP01135

PATIENT
  Age: 69 Year
  Sex: Male

DRUGS (2)
  1. PREDNISONE [Suspect]
     Active Substance: PREDNISONE
     Indication: Organising pneumonia
     Dosage: DOSE TAPPERED
  2. PREDNISONE [Suspect]
     Active Substance: PREDNISONE
     Dosage: MAINTAINED

REACTIONS (2)
  - Rebound effect [Fatal]
  - VEXAS syndrome [Fatal]
